FAERS Safety Report 8870247 (Version 1)
Quarter: 2012Q4

REPORT INFORMATION
  Report Type: Spontaneous
  Country: US (occurrence: None)
  Receive Date: 20121026
  Receipt Date: 20121026
  Transmission Date: 20130627
  Serious: No
  Sender: FDA-Public Use
  Company Number: None

PATIENT
  Sex: Female
  Weight: 72.58 kg

DRUGS (1)
  1. CARTIA XT [Suspect]
     Indication: HYPERTENSION
     Route: 048
     Dates: start: 20120810, end: 20121017

REACTIONS (2)
  - Skin discolouration [None]
  - Social avoidant behaviour [None]
